FAERS Safety Report 24580846 (Version 1)
Quarter: 2024Q4

REPORT INFORMATION
  Report Type: Spontaneous
  Country: US (occurrence: None)
  Receive Date: 20241105
  Receipt Date: 20241105
  Transmission Date: 20250115
  Serious: Yes (Hospitalization, Disabling, Other)
  Sender: Public
  Company Number: None

PATIENT
  Age: 26 Year
  Sex: Male
  Weight: 113.4 kg

DRUGS (3)
  1. PREDNISOLONE ACETATE [Suspect]
     Active Substance: PREDNISOLONE ACETATE
     Dosage: FOUR TIMES A DAY INTO THE EYE
     Dates: start: 20230713, end: 20240221
  2. Resperodone [Concomitant]
  3. HERBAL NOS [Concomitant]
     Active Substance: HERBALS

REACTIONS (2)
  - Conjunctivitis [None]
  - Headache [None]

NARRATIVE: CASE EVENT DATE: 20240131
